FAERS Safety Report 20609950 (Version 10)
Quarter: 2022Q4

REPORT INFORMATION
  Report Type: Spontaneous
  Country: CA (occurrence: CA)
  Receive Date: 20220318
  Receipt Date: 20221230
  Transmission Date: 20230113
  Serious: Yes (Other)
  Sender: FDA-Public Use
  Company Number: CA-CELLTRION INC.-2022CA003239

PATIENT

DRUGS (19)
  1. INFLECTRA [Suspect]
     Active Substance: INFLIXIMAB-DYYB
     Indication: Crohn^s disease
     Dosage: WEEK 0,2,6, THEN EVERY 8 WEEKS
     Route: 042
     Dates: start: 20220308, end: 20220308
  2. INFLECTRA [Suspect]
     Active Substance: INFLIXIMAB-DYYB
     Dosage: WEEKS 0,2,6, THEN EVERY 8 WEEKS
     Route: 042
     Dates: start: 20220308
  3. INFLECTRA [Suspect]
     Active Substance: INFLIXIMAB-DYYB
     Dosage: WEEKS 0,2,6, THEN EVERY 8 WEEKS
     Route: 042
     Dates: start: 20220308, end: 20221006
  4. INFLECTRA [Suspect]
     Active Substance: INFLIXIMAB-DYYB
     Dosage: WEEKS 0,2,6, THEN EVERY 8 WEEKS
     Route: 042
     Dates: start: 20220322
  5. INFLECTRA [Suspect]
     Active Substance: INFLIXIMAB-DYYB
     Dosage: WEEKS 0,2,6, THEN EVERY 8 WEEKS
     Route: 042
     Dates: start: 20220422
  6. INFLECTRA [Suspect]
     Active Substance: INFLIXIMAB-DYYB
     Dosage: WEEKS 0,2,6, THEN EVERY 8 WEEKS
     Route: 042
     Dates: start: 20220422
  7. INFLECTRA [Suspect]
     Active Substance: INFLIXIMAB-DYYB
     Dosage: WEEKS 0,2,6, THEN EVERY 8 WEEKS
     Route: 042
     Dates: start: 20220422
  8. INFLECTRA [Suspect]
     Active Substance: INFLIXIMAB-DYYB
     Dosage: WEEKS 0,2,6, THEN EVERY 8 WEEKS
     Route: 042
     Dates: start: 20220614
  9. INFLECTRA [Suspect]
     Active Substance: INFLIXIMAB-DYYB
     Dosage: WEEKS 0,2,6, THEN EVERY 8 WEEKS
     Route: 042
     Dates: start: 20221006
  10. INFLECTRA [Suspect]
     Active Substance: INFLIXIMAB-DYYB
     Dosage: EVERY 4 WEEK
     Route: 042
     Dates: start: 20221121
  11. INFLECTRA [Suspect]
     Active Substance: INFLIXIMAB-DYYB
     Dosage: EVERY 4 WEEK
     Route: 042
     Dates: start: 20221121
  12. INFLECTRA [Suspect]
     Active Substance: INFLIXIMAB-DYYB
     Dosage: EVERY 4 WEEK
     Route: 042
     Dates: start: 20221219
  13. DIPHENHYDRAMINE [Concomitant]
     Active Substance: DIPHENHYDRAMINE
     Indication: Premedication
     Dosage: 50 MG
     Route: 048
     Dates: start: 20220422, end: 20220422
  14. HYDROCORTISONE [Concomitant]
     Active Substance: HYDROCORTISONE
     Indication: Premedication
     Dosage: 100 MG
     Route: 042
     Dates: start: 20220422, end: 20220422
  15. LAMIVUDINE [Concomitant]
     Active Substance: LAMIVUDINE
     Dosage: UNK
  16. DOXYTAB [DOXYCYCLINE HYDROCHLORIDE] [Concomitant]
     Indication: Hidradenitis
     Dosage: 100 MG, 2X/DAY
     Route: 048
  17. METFORMIN [Concomitant]
     Active Substance: METFORMIN HYDROCHLORIDE
     Dosage: 500 MG, 2X/DAY
     Route: 048
  18. LORAZEPAM [Concomitant]
     Active Substance: LORAZEPAM
     Dosage: 500 UG
     Route: 048
  19. TRAMADOL [Concomitant]
     Active Substance: TRAMADOL
     Dosage: 50 MG, 3X/DAY
     Route: 048

REACTIONS (37)
  - Abscess intestinal [Recovered/Resolved]
  - Anal abscess [Unknown]
  - Penile abscess [Not Recovered/Not Resolved]
  - Nausea [Recovering/Resolving]
  - Hidradenitis [Not Recovered/Not Resolved]
  - Drug ineffective [Unknown]
  - Malaise [Unknown]
  - Fatigue [Unknown]
  - Product after taste [Unknown]
  - Inflammation [Not Recovered/Not Resolved]
  - Abdominal distension [Not Recovered/Not Resolved]
  - Dyspnoea [Not Recovered/Not Resolved]
  - Discomfort [Not Recovered/Not Resolved]
  - Migraine [Recovered/Resolved]
  - Feeling abnormal [Not Recovered/Not Resolved]
  - Eye swelling [Not Recovered/Not Resolved]
  - Dizziness [Recovered/Resolved]
  - Swelling face [Recovered/Resolved]
  - Abdominal tenderness [Recovered/Resolved]
  - Lacrimation increased [Recovered/Resolved]
  - Condition aggravated [Not Recovered/Not Resolved]
  - Myalgia [Unknown]
  - Headache [Recovered/Resolved]
  - Face oedema [Unknown]
  - Dyspnoea exertional [Not Recovered/Not Resolved]
  - Abscess [Unknown]
  - Weight decreased [Unknown]
  - Fatigue [Recovered/Resolved]
  - Abdominal pain [Recovered/Resolved]
  - Dizziness [Recovered/Resolved]
  - Nausea [Recovered/Resolved]
  - Injection site pain [Unknown]
  - Oedema [Unknown]
  - Abdominal pain [Unknown]
  - Fatigue [Unknown]
  - Off label use [Unknown]
  - Inappropriate schedule of product administration [Unknown]

NARRATIVE: CASE EVENT DATE: 20220101
